FAERS Safety Report 6916635-8 (Version None)
Quarter: 2010Q3

REPORT INFORMATION
  Report Type: 
  Country: None (occurrence: None)
  Receive Date: 20100810
  Receipt Date: 20100803
  Transmission Date: 20110219
  Serious: Yes (Hospitalization)
  Sender: FDA-Public Use
  Company Number: US-ROCHE-707488

PATIENT
  Sex: Female

DRUGS (6)
  1. PEGASYS [Suspect]
     Indication: HEPATITIS C
     Dosage: FORM: PRE-FILLED SYRINGE
     Route: 065
     Dates: start: 20100507
  2. PEGASYS [Suspect]
     Route: 065
  3. PEGASYS [Suspect]
     Dosage: PATIENT IN WEEK 10
     Route: 065
     Dates: start: 20100706, end: 20100716
  4. RIBASPHERE [Suspect]
     Indication: HEPATITIS C
     Route: 065
     Dates: start: 20100507, end: 20100526
  5. RIBASPHERE [Suspect]
     Route: 065
     Dates: start: 20100628
  6. RIBASPHERE [Suspect]
     Dosage: PATIENT IN WEEK 10 OF THERAPY
     Route: 065
     Dates: start: 20100711, end: 20100716

REACTIONS (8)
  - AMMONIA INCREASED [None]
  - ANAEMIA [None]
  - ASTHENIA [None]
  - DECREASED APPETITE [None]
  - DIZZINESS [None]
  - FALL [None]
  - HEADACHE [None]
  - INSOMNIA [None]
